FAERS Safety Report 7756967-7 (Version None)
Quarter: 2011Q3

REPORT INFORMATION
  Report Type: 
  Country: None (occurrence: None)
  Receive Date: 20110916
  Receipt Date: 20110916
  Transmission Date: 20111222
  Serious: Yes (Hospitalization)
  Sender: FDA-Public Use
  Company Number: None

PATIENT
  Age: 62 Year
  Sex: Male
  Weight: 54.431 kg

DRUGS (1)
  1. ATRIPLA [Suspect]
     Indication: HIV TEST POSITIVE
     Dosage: UNKNOWN
     Dates: start: 20110702, end: 20110812

REACTIONS (3)
  - PANIC ATTACK [None]
  - SUICIDAL IDEATION [None]
  - ANXIETY [None]
